FAERS Safety Report 13964447 (Version 2)
Quarter: 2017Q3

REPORT INFORMATION
  Report Type: Spontaneous
  Country: US (occurrence: US)
  Receive Date: 20170913
  Receipt Date: 20170922
  Transmission Date: 20171128
  Serious: Yes (Other)
  Sender: FDA-Public Use
  Company Number: US-PFIZER INC-2017391962

PATIENT
  Age: 74 Year
  Sex: Female

DRUGS (1)
  1. METHOTREXATE SODIUM. [Suspect]
     Active Substance: METHOTREXATE SODIUM
     Dosage: UNK

REACTIONS (14)
  - Arthralgia [Unknown]
  - Nodule [Unknown]
  - Eosinophilia [Unknown]
  - Depression [Unknown]
  - Pain [Unknown]
  - Peripheral swelling [Unknown]
  - Joint swelling [Unknown]
  - Drug ineffective [Unknown]
  - Dyspnoea [Unknown]
  - Synovitis [Unknown]
  - Weight decreased [Unknown]
  - Memory impairment [Unknown]
  - Apnoea [Unknown]
  - C-reactive protein increased [Unknown]
